FAERS Safety Report 23737442 (Version 1)
Quarter: 2024Q2

REPORT INFORMATION
  Report Type: Spontaneous
  Country: US (occurrence: None)
  Receive Date: 20240412
  Receipt Date: 20240412
  Transmission Date: 20240716
  Serious: No
  Sender: FDA-Public Use
  Company Number: None

PATIENT
  Age: 37 Year
  Sex: Male
  Weight: 128.25 kg

DRUGS (1)
  1. BOTOX [Suspect]
     Active Substance: ONABOTULINUMTOXINA
     Indication: Hypertonic bladder

REACTIONS (6)
  - Constipation [None]
  - Drug ineffective [None]
  - Insomnia [None]
  - Bladder catheterisation [None]
  - Painful erection [None]
  - Catheter site pain [None]

NARRATIVE: CASE EVENT DATE: 20231117
